FAERS Safety Report 23147842 (Version 1)
Quarter: 2023Q4

REPORT INFORMATION
  Report Type: Spontaneous
  Country: US (occurrence: US)
  Receive Date: 20231106
  Receipt Date: 20231106
  Transmission Date: 20240109
  Serious: No
  Sender: FDA-Public Use
  Company Number: US-ELI_LILLY_AND_COMPANY-US202311001415

PATIENT
  Age: 63 Year
  Sex: Male

DRUGS (2)
  1. FORTEO [Suspect]
     Active Substance: TERIPARATIDE
     Indication: Ankylosing spondylitis
     Dosage: UNK UNK, UNKNOWN
     Route: 058
  2. FORTEO [Suspect]
     Active Substance: TERIPARATIDE
     Dosage: UNK UNK, UNKNOWN
     Route: 058
     Dates: start: 202303

REACTIONS (2)
  - Accidental underdose [Unknown]
  - Off label use [Unknown]

NARRATIVE: CASE EVENT DATE: 20231001
